FAERS Safety Report 7414293-X (Version None)
Quarter: 2011Q2

REPORT INFORMATION
  Report Type: 
  Country: None (occurrence: None)
  Receive Date: 20110411
  Receipt Date: 20110411
  Transmission Date: 20111010
  Serious: Yes (Hospitalization)
  Sender: FDA-Public Use
  Company Number: None

PATIENT
  Sex: Female
  Weight: 113.3993 kg

DRUGS (2)
  1. ZEBETA [Suspect]
     Indication: HYPERTENSION
     Dosage: 5 MG/ 1 TABLET QD PO
     Route: 048
     Dates: start: 20030101, end: 20110408
  2. CALAN [Suspect]
     Indication: HYPERTENSION
     Dosage: 240 MG/ 1/2 TABLET QD QD PO
     Route: 048
     Dates: start: 19850101, end: 20110408

REACTIONS (3)
  - MALAISE [None]
  - DYSARTHRIA [None]
  - PRODUCT SUBSTITUTION ISSUE [None]
